FAERS Safety Report 5777229-3 (Version None)
Quarter: 2008Q2

REPORT INFORMATION
  Report Type: 
  Country: None (occurrence: None)
  Receive Date: 20080616
  Receipt Date: 20080530
  Transmission Date: 20081010
  Serious: Yes (Hospitalization)
  Sender: FDA-Public Use
  Company Number: FABR-1000099

PATIENT
  Age: 18 Year
  Sex: Male
  Weight: 68 kg

DRUGS (1)
  1. FABRAZYME [Suspect]
     Indication: FABRY'S DISEASE
     Dosage: 68 MG, Q2W, INTRAVENOUS
     Route: 042
     Dates: start: 20030703

REACTIONS (5)
  - BENIGN INTRACRANIAL HYPERTENSION [None]
  - BODY TEMPERATURE INCREASED [None]
  - CHILLS [None]
  - INFUSION RELATED REACTION [None]
  - PNEUMONIA PRIMARY ATYPICAL [None]
